FAERS Safety Report 5865996-X (Version None)
Quarter: 2008Q3

REPORT INFORMATION
  Report Type: 
  Country: None (occurrence: None)
  Receive Date: 20080829
  Receipt Date: 20080820
  Transmission Date: 20090109
  Serious: Yes (Death, Other)
  Sender: FDA-Public Use
  Company Number: US-PFIZER INC-2008056868

PATIENT
  Sex: Female

DRUGS (6)
  1. LYRICA [Suspect]
     Indication: BACK PAIN
  2. FENTANYL-25 [Suspect]
  3. XANAX [Concomitant]
  4. ANTI-ASTHMATICS [Concomitant]
  5. BENZODIAZEPINE DERIVATIVES [Concomitant]
  6. DRUG, UNSPECIFIED [Concomitant]

REACTIONS (5)
  - BALANCE DISORDER [None]
  - DEATH [None]
  - DYSPNOEA [None]
  - GAIT DISTURBANCE [None]
  - IMPAIRED DRIVING ABILITY [None]
